FAERS Safety Report 19379548 (Version 12)
Quarter: 2025Q3

REPORT INFORMATION
  Report Type: Spontaneous
  Country: US (occurrence: US)
  Receive Date: 20210607
  Receipt Date: 20250722
  Transmission Date: 20251021
  Serious: Yes (Other)
  Sender: AMGEN
  Company Number: US-AMGEN-USASP2021086909

PATIENT
  Age: 39 Year
  Sex: Female

DRUGS (17)
  1. OTEZLA [Suspect]
     Active Substance: APREMILAST
     Indication: Psoriasis
     Dosage: 30 MILLIGRAM, BID
     Route: 048
     Dates: start: 20210423
  2. OTEZLA [Suspect]
     Active Substance: APREMILAST
     Indication: Psoriatic arthropathy
     Dosage: 30 MILLIGRAM, BID
     Route: 048
  3. ATENOLOL [Concomitant]
     Active Substance: ATENOLOL
     Route: 065
  4. BETAMETHASONE DIPROPIONATE [Concomitant]
     Active Substance: BETAMETHASONE DIPROPIONATE
     Route: 065
  5. HYDROCODONE BITARTRATE AND ACETAMINOPHEN [Concomitant]
     Active Substance: ACETAMINOPHEN\HYDROCODONE BITARTRATE
     Route: 065
  6. KELNOR 1/35 [Concomitant]
     Active Substance: ETHINYL ESTRADIOL\ETHYNODIOL DIACETATE
     Route: 065
  7. LISINOPRIL [Concomitant]
     Active Substance: LISINOPRIL
     Route: 065
  8. LORATADINE [Concomitant]
     Active Substance: LORATADINE
     Route: 065
  9. PHENTERMINE [Concomitant]
     Active Substance: PHENTERMINE
     Route: 065
  10. SPIRONOLACTONE [Concomitant]
     Active Substance: SPIRONOLACTONE
     Route: 065
  11. VITAMIN D [Concomitant]
     Active Substance: VITAMIN D NOS
     Route: 065
  12. DEXAMETHASONE SODIUM PHOSPHATE [Concomitant]
     Active Substance: DEXAMETHASONE SODIUM PHOSPHATE
     Route: 065
  13. LEVALBUTEROL [Concomitant]
     Active Substance: LEVALBUTEROL
     Route: 065
  14. DEXAMETHASONE [Concomitant]
     Active Substance: DEXAMETHASONE
     Route: 065
  15. CELESTONE SOLUSPAN [Concomitant]
     Active Substance: BETAMETHASONE ACETATE\BETAMETHASONE SODIUM PHOSPHATE
     Route: 065
  16. IBUPROFEN [Concomitant]
     Active Substance: IBUPROFEN
     Route: 065
  17. KENALOG [Concomitant]
     Active Substance: TRIAMCINOLONE ACETONIDE
     Route: 065

REACTIONS (6)
  - Psoriatic arthropathy [Unknown]
  - Psoriasis [Unknown]
  - Alopecia [Unknown]
  - Fatigue [Unknown]
  - Headache [Unknown]
  - Therapy interrupted [Unknown]

NARRATIVE: CASE EVENT DATE: 20210101
